FAERS Safety Report 21662233 (Version 2)
Quarter: 2023Q4

REPORT INFORMATION
  Report Type: Spontaneous
  Country: CA (occurrence: CA)
  Receive Date: 20221130
  Receipt Date: 20231031
  Transmission Date: 20240110
  Serious: Yes (Other)
  Sender: FDA-Public Use
  Company Number: CA-PFIZER INC-202201332500

PATIENT
  Age: 28 Year
  Sex: Male

DRUGS (2)
  1. ABRILADA [Suspect]
     Active Substance: ADALIMUMAB-AFZB
     Indication: Crohn^s disease
     Dosage: 40 MG, EVERY 2 WEEKS, PREFILLED PEN
     Route: 058
     Dates: start: 20220812
  2. ABRILADA [Suspect]
     Active Substance: ADALIMUMAB-AFZB
     Dosage: 40 MG EVERY 3 TO 4 WEEKS (NOT 40 EVERY OTHER WEEK AS ORDERED)

REACTIONS (4)
  - Hand fracture [Unknown]
  - Drug level decreased [Not Recovered/Not Resolved]
  - C-reactive protein increased [Not Recovered/Not Resolved]
  - Intentional product misuse [Unknown]

NARRATIVE: CASE EVENT DATE: 20220101
